FAERS Safety Report 10181663 (Version 2)
Quarter: 2014Q2

REPORT INFORMATION
  Report Type: Spontaneous
  Country: US (occurrence: US)
  Receive Date: 20140519
  Receipt Date: 20140522
  Transmission Date: 20141212
  Serious: No
  Sender: FDA-Public Use
  Company Number: US-009507513-1405USA008367

PATIENT
  Age: 29 Year
  Sex: Female

DRUGS (1)
  1. NEXPLANON [Suspect]
     Indication: CONTRACEPTION
     Dosage: SINGLE ROD
     Route: 059
     Dates: start: 20140501, end: 20140507

REACTIONS (6)
  - Implant site erythema [Unknown]
  - Nausea [Unknown]
  - Headache [Unknown]
  - Implant site pain [Recovering/Resolving]
  - Paraesthesia [Unknown]
  - Implant site discolouration [Unknown]
